FAERS Safety Report 10624790 (Version 2)
Quarter: 2015Q2

REPORT INFORMATION
  Report Type: Report from Study
  Country: JP (occurrence: JP)
  Receive Date: 20141204
  Receipt Date: 20150512
  Transmission Date: 20150821
  Serious: Yes (Other)
  Sender: FDA-Public Use
  Company Number: JP-ROCHE-1502308

PATIENT
  Age: 77 Year
  Sex: Female

DRUGS (4)
  1. RANIBIZUMAB [Suspect]
     Active Substance: RANIBIZUMAB
     Indication: RETINAL VEIN OCCLUSION
     Route: 050
     Dates: start: 20140306, end: 20140306
  2. RANIBIZUMAB [Suspect]
     Active Substance: RANIBIZUMAB
     Route: 050
     Dates: start: 20140412
  3. HYALEIN [Concomitant]
     Active Substance: HYALURONATE SODIUM
     Route: 065
  4. CRAVIT [Concomitant]
     Active Substance: LEVOFLOXACIN
     Route: 065

REACTIONS (1)
  - Posterior capsule opacification [Recovered/Resolved]

NARRATIVE: CASE EVENT DATE: 20140623
